FAERS Safety Report 7026595-X (Version None)
Quarter: 2010Q3

REPORT INFORMATION
  Report Type: 
  Country: None (occurrence: None)
  Receive Date: 20100930
  Receipt Date: 20100920
  Transmission Date: 20110219
  Serious: Yes (Other)
  Sender: FDA-Public Use
  Company Number: SE-GDP-10408417

PATIENT
  Sex: Female

DRUGS (1)
  1. EPIDUO [Suspect]
     Indication: ACNE
     Dosage: (TOPICAL)
     Route: 061
     Dates: end: 20100502

REACTIONS (6)
  - ANGIOEDEMA [None]
  - BURNING SENSATION [None]
  - CHLOASMA [None]
  - EXFOLIATIVE RASH [None]
  - PIGMENTATION DISORDER [None]
  - PRURITUS [None]
